FAERS Safety Report 8871503 (Version 1)
Quarter: 2012Q4

REPORT INFORMATION
  Report Type: 
  Country: US (occurrence: US)
  Receive Date: 20121026
  Receipt Date: 20121026
  Transmission Date: 20130627
  Serious: No
  Sender: FDA-Public Use
  Company Number: US-AMGEN-USASP2012044634

PATIENT
  Age: 59 Year
  Sex: Female
  Weight: 54.42 kg

DRUGS (3)
  1. ENBREL [Suspect]
     Indication: RHEUMATOID ARTHRITIS
     Dosage: 50 mg, qwk
     Dates: start: 20120401
  2. PREMARIN [Concomitant]
     Dosage: 0.3 mg, UNK
  3. HYDROCODONE W/APAP                 /00607101/ [Concomitant]
     Dosage: UNK

REACTIONS (3)
  - Musculoskeletal stiffness [Not Recovered/Not Resolved]
  - Back pain [Unknown]
  - Pain in extremity [Unknown]
